FAERS Safety Report 24287375 (Version 1)
Quarter: 2024Q3

REPORT INFORMATION
  Report Type: Spontaneous
  Country: US (occurrence: None)
  Receive Date: 20240904
  Receipt Date: 20240904
  Transmission Date: 20241017
  Serious: No
  Sender: Public
  Company Number: None

PATIENT
  Age: 74 Year
  Sex: Male

DRUGS (14)
  1. CYCLOPHOSPHAMIDE [Suspect]
     Active Substance: CYCLOPHOSPHAMIDE
     Indication: Plasma cell myeloma
     Dosage: FREQUENCY : WEEKLY;?
     Route: 048
     Dates: start: 202402, end: 202408
  2. DOCUSATE [Concomitant]
     Active Substance: DOCUSATE
  3. ELIQUIS [Concomitant]
     Active Substance: APIXABAN
  4. FUROSEMIDE [Concomitant]
     Active Substance: FUROSEMIDE
  5. NITROSTAT [Concomitant]
     Active Substance: NITROGLYCERIN
  6. PROCHLORPERAZINE [Concomitant]
  7. VENLAFAXINE [Concomitant]
     Active Substance: VENLAFAXINE HYDROCHLORIDE
  8. ACETAMINOPHEN [Concomitant]
     Active Substance: ACETAMINOPHEN
  9. ASPIRIN [Concomitant]
     Active Substance: ASPIRIN
  10. DEXAMETHASONE [Concomitant]
     Active Substance: DEXAMETHASONE
  11. GABAPENTIN [Concomitant]
     Active Substance: GABAPENTIN
  12. LEQVIO [Concomitant]
     Active Substance: INCLISIRAN SODIUM
  13. ONDANSETRON [Concomitant]
     Active Substance: ONDANSETRON
  14. OXYCODONE [Concomitant]
     Active Substance: OXYCODONE

REACTIONS (1)
  - Plasma cell myeloma [None]

NARRATIVE: CASE EVENT DATE: 20240801
